FAERS Safety Report 4618347-2 (Version None)
Quarter: 2005Q1

REPORT INFORMATION
  Report Type: 
  Country: None (occurrence: None)
  Receive Date: 20050323
  Receipt Date: 20050309
  Transmission Date: 20050727
  Serious: Yes (Disabling)
  Sender: FDA-Public Use
  Company Number: 2005SE00270

PATIENT
  Age: 37 Year
  Sex: Female
  Weight: 85 kg

DRUGS (3)
  1. SEROQUEL [Suspect]
     Indication: BIPOLAR DISORDER
     Dosage: DOSE TITRATION FROM 25 MG QD TO 400 MG QD
     Dates: start: 20040809, end: 20040801
  2. SEROQUEL [Suspect]
     Indication: BIPOLAR DISORDER
     Dosage: 400 MG QD PO
     Route: 048
     Dates: start: 20040801
  3. ZOLOFT [Concomitant]

REACTIONS (5)
  - DEPRESSION [None]
  - ELECTROENCEPHALOGRAM ABNORMAL [None]
  - NARCOLEPSY [None]
  - SLEEP APNOEA SYNDROME [None]
  - SLEEP ATTACKS [None]
